FAERS Safety Report 4711423-5 (Version None)
Quarter: 2005Q3

REPORT INFORMATION
  Report Type: 
  Country: None (occurrence: None)
  Receive Date: 20050711
  Receipt Date: 20050701
  Transmission Date: 20060218
  Serious: Yes (Hospitalization, Other)
  Sender: FDA-Public Use
  Company Number: HQWYE523517JUN05

PATIENT
  Age: 77 Year
  Sex: Male
  Weight: 77.7 kg

DRUGS (2)
  1. MYLOTARG [Suspect]
     Indication: ACUTE MYELOID LEUKAEMIA
     Dosage: 9 MG 1X PER 1 DAY, INTRAVENOUS
     Route: 042
     Dates: start: 20040701, end: 20040701
  2. SPIRONOLACTONE [Concomitant]

REACTIONS (3)
  - DYSPNOEA EXERTIONAL [None]
  - FEBRILE NEUTROPENIA [None]
  - PANCYTOPENIA [None]
